FAERS Safety Report 5561167-5 (Version None)
Quarter: 2007Q4

REPORT INFORMATION
  Report Type: 
  Country: None (occurrence: None)
  Receive Date: 20071215
  Receipt Date: 20071030
  Transmission Date: 20080405
  Serious: No
  Sender: FDA-Public Use
  Company Number: US-AMGEN-KDL250008

PATIENT
  Sex: Female

DRUGS (3)
  1. ENBREL [Suspect]
     Indication: RHEUMATOID ARTHRITIS
     Route: 058
     Dates: start: 20050623
  2. PLAQUENIL [Concomitant]
     Route: 048
     Dates: start: 19900101
  3. METHOTREXATE [Concomitant]
     Route: 048
     Dates: start: 20070915

REACTIONS (5)
  - COUGH [None]
  - DYSPHONIA [None]
  - RHINITIS [None]
  - SINUSITIS [None]
  - UPPER RESPIRATORY TRACT INFECTION [None]
